FAERS Safety Report 10381592 (Version 5)
Quarter: 2015Q1

REPORT INFORMATION
  Report Type: Report from Study
  Country: CA (occurrence: CA)
  Receive Date: 20140813
  Receipt Date: 20150202
  Transmission Date: 20150720
  Serious: Yes (Hospitalization, Disabling, Other)
  Sender: FDA-Public Use
  Company Number: CA-ABBVIE-12P-028-1012170-00

PATIENT
  Age: 17 Year
  Sex: Male
  Weight: 46.4 kg

DRUGS (4)
  1. HUMIRA [Suspect]
     Active Substance: ADALIMUMAB
     Indication: CROHN^S DISEASE
     Route: 058
     Dates: start: 20121026, end: 201211
  2. HUMIRA [Suspect]
     Active Substance: ADALIMUMAB
     Dosage: UNKNOWN FREQUENCY, LAST DOSE: 22 JAN 2013
     Route: 058
  3. HUMIRA [Suspect]
     Active Substance: ADALIMUMAB
     Route: 058
     Dates: start: 20140428, end: 201405
  4. HUMIRA [Suspect]
     Active Substance: ADALIMUMAB
     Route: 058
     Dates: start: 20121129

REACTIONS (13)
  - Abscess intestinal [Recovering/Resolving]
  - Abscess intestinal [Not Recovered/Not Resolved]
  - Crohn^s disease [Unknown]
  - Intestinal resection [Unknown]
  - Gastrointestinal inflammation [Unknown]
  - Psoas abscess [Not Recovered/Not Resolved]
  - Ileal fistula [Unknown]
  - Localised infection [Recovering/Resolving]
  - Weight increased [Not Recovered/Not Resolved]
  - Anxiety [Unknown]
  - Colitis [Unknown]
  - Crohn^s disease [Not Recovered/Not Resolved]
  - Post procedural cellulitis [Unknown]

NARRATIVE: CASE EVENT DATE: 201302
